FAERS Safety Report 5289433-1 (Version None)
Quarter: 2007Q2

REPORT INFORMATION
  Report Type: 
  Country: None (occurrence: None)
  Receive Date: 20070406
  Receipt Date: 20070326
  Transmission Date: 20071010
  Serious: Yes (Other)
  Sender: FDA-Public Use
  Company Number: PHBS2007JP05548

PATIENT
  Sex: Male

DRUGS (3)
  1. PREDONINE [Suspect]
     Indication: HISTIOCYTOSIS HAEMATOPHAGIC
     Route: 065
  2. ANTIBIOTICS [Concomitant]
  3. NEORAL [Suspect]
     Indication: HISTIOCYTOSIS HAEMATOPHAGIC
     Route: 048

REACTIONS (3)
  - PANCYTOPENIA [None]
  - PLATELET COUNT DECREASED [None]
  - WHITE BLOOD CELL COUNT DECREASED [None]
